FAERS Safety Report 13493635 (Version 1)
Quarter: 2017Q2

REPORT INFORMATION
  Report Type: Spontaneous
  Country: US (occurrence: US)
  Receive Date: 20170427
  Receipt Date: 20170427
  Transmission Date: 20170830
  Serious: No
  Sender: FDA-Public Use
  Company Number: US-ROCHE-1462319

PATIENT
  Sex: Female

DRUGS (7)
  1. ATORVASTATIN [Concomitant]
     Active Substance: ATORVASTATIN
  2. LEVOTHYROXINE. [Concomitant]
     Active Substance: LEVOTHYROXINE
  3. ERIVEDGE [Suspect]
     Active Substance: VISMODEGIB
     Indication: BASAL CELL CARCINOMA
  4. LIPITOR [Concomitant]
     Active Substance: ATORVASTATIN CALCIUM
  5. ERIVEDGE [Suspect]
     Active Substance: VISMODEGIB
     Indication: BASAL CELL CARCINOMA
     Route: 048
     Dates: start: 20140715
  6. LISINOPRIL. [Concomitant]
     Active Substance: LISINOPRIL
  7. FOSAMAX [Concomitant]
     Active Substance: ALENDRONATE SODIUM

REACTIONS (6)
  - Decreased appetite [Unknown]
  - Constipation [Unknown]
  - Urinary tract infection [Recovering/Resolving]
  - Vomiting [Recovering/Resolving]
  - Ageusia [Unknown]
  - Dry mouth [Not Recovered/Not Resolved]
